FAERS Safety Report 4676641-3 (Version None)
Quarter: 2005Q2

REPORT INFORMATION
  Report Type: 
  Country: None (occurrence: None)
  Receive Date: 20050527
  Receipt Date: 20050510
  Transmission Date: 20051028
  Serious: No
  Sender: FDA-Public Use
  Company Number: PHBS2005IE06740

PATIENT
  Sex: Female

DRUGS (1)
  1. ZOMETA [Suspect]
     Indication: OVARIAN CANCER

REACTIONS (2)
  - BLOOD CREATININE INCREASED [None]
  - UNDERWEIGHT [None]
